FAERS Safety Report 7677544-2 (Version None)
Quarter: 2011Q3

REPORT INFORMATION
  Report Type: 
  Country: None (occurrence: None)
  Receive Date: 20110810
  Receipt Date: 20110810
  Transmission Date: 20111222
  Serious: Yes (Other)
  Sender: FDA-Public Use
  Company Number: None

PATIENT
  Sex: Female

DRUGS (1)
  1. PROPOXYPHENE HCL AND ACETAMINOPHEN [Suspect]
     Indication: PAIN
     Dosage: 4 PILLS ONCE DAILY ORAL
     Route: 048
     Dates: start: 20020801

REACTIONS (4)
  - DIZZINESS [None]
  - CARDIAC DISORDER [None]
  - HEART RATE INCREASED [None]
  - SYNCOPE [None]
